FAERS Safety Report 19625618 (Version 1)
Quarter: 2021Q3

REPORT INFORMATION
  Report Type: Report from Study
  Country: US (occurrence: US)
  Receive Date: 20210729
  Receipt Date: 20210729
  Transmission Date: 20211014
  Serious: Yes (Other)
  Sender: FDA-Public Use
  Company Number: US-ROCHE-2875480

PATIENT
  Age: 60 Year
  Sex: Male
  Weight: 99 kg

DRUGS (38)
  1. ONDANSETRON [Concomitant]
     Active Substance: ONDANSETRON
     Indication: NAUSEA
     Route: 042
     Dates: start: 20210629, end: 20210702
  2. SODIUM CHLORIDE. [Concomitant]
     Active Substance: SODIUM CHLORIDE
     Route: 042
     Dates: start: 20210629, end: 20210702
  3. DIPHENHYDRAMINE. [Concomitant]
     Active Substance: DIPHENHYDRAMINE
     Route: 042
     Dates: start: 20210715, end: 20210715
  4. VALIUM [Concomitant]
     Active Substance: DIAZEPAM
     Indication: SPINAL PAIN
     Route: 048
     Dates: start: 2018
  5. IVERMECTIN. [Concomitant]
     Active Substance: IVERMECTIN
     Indication: PROPHYLAXIS
     Route: 048
     Dates: start: 20210210
  6. VASOTEC [Concomitant]
     Active Substance: ENALAPRIL MALEATE
     Indication: HYPERTENSION
     Route: 058
     Dates: start: 20210629, end: 20210702
  7. POTASSIUM CHLORIDE. [Concomitant]
     Active Substance: POTASSIUM CHLORIDE
     Dosage: 20 OTHER
     Route: 042
     Dates: start: 20210629, end: 20210702
  8. POTASSIUM CHLORIDE. [Concomitant]
     Active Substance: POTASSIUM CHLORIDE
     Dosage: 10 OTHER
     Route: 042
     Dates: start: 20210629, end: 20210702
  9. LEVOFLOXACIN. [Concomitant]
     Active Substance: LEVOFLOXACIN
     Indication: COLITIS
     Route: 048
     Dates: start: 20210702, end: 20210714
  10. PROVIGIL [Concomitant]
     Active Substance: MODAFINIL
     Indication: FATIGUE
     Route: 048
     Dates: start: 2018
  11. CHLORDIAZEPOXIDE. [Concomitant]
     Active Substance: CHLORDIAZEPOXIDE
     Route: 048
     Dates: start: 20210319
  12. SODIUM CHLORIDE. [Concomitant]
     Active Substance: SODIUM CHLORIDE
     Indication: FLUSHING
     Route: 042
     Dates: start: 20210629, end: 20210702
  13. VITAMIN D3 [Concomitant]
     Active Substance: CHOLECALCIFEROL
     Indication: VITAMIN D DEFICIENCY
     Route: 048
     Dates: start: 2011
  14. ROPINIROLE. [Concomitant]
     Active Substance: ROPINIROLE
     Indication: MUSCLE SPASMS
     Route: 048
     Dates: start: 202007
  15. CLOMID [Concomitant]
     Active Substance: CLOMIPHENE CITRATE
     Route: 048
     Dates: start: 20210318
  16. CYCLOBENZAPRINE. [Concomitant]
     Active Substance: CYCLOBENZAPRINE
     Indication: SPINAL PAIN
     Route: 048
     Dates: start: 20210318
  17. POTASSIUM CHLORIDE. [Concomitant]
     Active Substance: POTASSIUM CHLORIDE
     Dosage: 40 OTHER
     Route: 048
     Dates: start: 20210629, end: 20210702
  18. PANTOPRAZOLE [Concomitant]
     Active Substance: PANTOPRAZOLE
     Indication: GASTROOESOPHAGEAL REFLUX DISEASE
     Route: 048
     Dates: start: 20210702
  19. ROCEPHIN [Concomitant]
     Active Substance: CEFTRIAXONE SODIUM
     Indication: COLITIS
     Route: 042
     Dates: start: 20210629, end: 20210702
  20. LOVENOX [Concomitant]
     Active Substance: ENOXAPARIN SODIUM
     Route: 058
     Dates: start: 20210629, end: 20210702
  21. OCRELIZUMAB. [Suspect]
     Active Substance: OCRELIZUMAB
     Indication: PRIMARY PROGRESSIVE MULTIPLE SCLEROSIS
     Route: 042
     Dates: start: 20190812
  22. NALOXONE [Concomitant]
     Active Substance: NALOXONE
     Route: 042
     Dates: start: 20210629, end: 20210702
  23. DHEA [Concomitant]
     Active Substance: PRASTERONE
     Route: 048
     Dates: start: 2016
  24. METRONIDAZOLE. [Concomitant]
     Active Substance: METRONIDAZOLE
     Indication: COLITIS
     Route: 048
     Dates: start: 20210702, end: 20210714
  25. ACETAMINOPHEN. [Concomitant]
     Active Substance: ACETAMINOPHEN
     Route: 048
     Dates: start: 20210715, end: 20210715
  26. SUPER B COMPLEX [Concomitant]
     Active Substance: CYANOCOBALAMIN\DEXPANTHENOL\NIACINAMIDE\PYRIDOXINE HYDROCHLORIDE\RIBOFLAVIN 5^-PHOSPHATE SODIUM\THIAMINE HYDROCHLORIDE\VITAMIN B COMPLEX
     Route: 048
     Dates: start: 2015
  27. SAW PALMETTO [Concomitant]
     Active Substance: HERBALS\SAW PALMETTO
     Route: 048
     Dates: start: 2016
  28. OMEGA 3 FISH OILS [Concomitant]
     Active Substance: OMEGA-3 FATTY ACIDS
     Route: 048
     Dates: start: 2016
  29. PANTOPRAZOLE [Concomitant]
     Active Substance: PANTOPRAZOLE
     Indication: GASTROOESOPHAGEAL REFLUX DISEASE
     Route: 048
     Dates: start: 20210318
  30. HYDROCODONE/ACETAMINOPHEN [Concomitant]
     Active Substance: ACETAMINOPHEN\HYDROCODONE
     Route: 048
     Dates: start: 20210626, end: 20210629
  31. ONDANSETRON ODT [Concomitant]
     Active Substance: ONDANSETRON
     Indication: NAUSEA
     Route: 042
     Dates: start: 20210629, end: 20210702
  32. VITAMIN C [Concomitant]
     Active Substance: ASCORBIC ACID
     Route: 048
     Dates: start: 2015
  33. PUMPKIN SEED [Concomitant]
     Active Substance: PUMPKIN SEED
     Route: 048
     Dates: start: 2018
  34. GABAPENTIN. [Concomitant]
     Active Substance: GABAPENTIN
     Indication: PAIN
     Route: 048
     Dates: start: 20210318
  35. VESICARE [Concomitant]
     Active Substance: SOLIFENACIN SUCCINATE
     Indication: HYPERTONIC BLADDER
     Route: 048
     Dates: start: 20210318
  36. MAGNESIUM SULFATE. [Concomitant]
     Active Substance: MAGNESIUM SULFATE
     Route: 042
     Dates: start: 20210629, end: 20210702
  37. MELATONIN [Concomitant]
     Active Substance: MELATONIN
     Indication: INSOMNIA
     Route: 048
     Dates: start: 20210629
  38. OXYCODONE AND ACETAMINOPHEN [Concomitant]
     Active Substance: ACETAMINOPHEN\OXYCODONE HYDROCHLORIDE
     Indication: PAIN
     Route: 048
     Dates: start: 20210702, end: 20210705

REACTIONS (2)
  - Hypertension [Not Recovered/Not Resolved]
  - Joint swelling [Not Recovered/Not Resolved]

NARRATIVE: CASE EVENT DATE: 20210718
